FAERS Safety Report 14342809 (Version 1)
Quarter: 2017Q4

REPORT INFORMATION
  Report Type: Spontaneous
  Country: US (occurrence: US)
  Receive Date: 20171229
  Receipt Date: 20171229
  Transmission Date: 20180321
  Serious: No
  Sender: FDA-Public Use
  Company Number: None

PATIENT
  Sex: Male

DRUGS (27)
  1. MUCINE [Concomitant]
  2. ALDACTONE [Concomitant]
     Active Substance: SPIRONOLACTONE
  3. SPIRIVA [Concomitant]
     Active Substance: TIOTROPIUM BROMIDE MONOHYDRATE
  4. MEXILETINE [Concomitant]
     Active Substance: MEXILETINE
  5. PREDNISONE. [Concomitant]
     Active Substance: PREDNISONE
  6. AZITHROMYCIN ANHYDROUS. [Concomitant]
     Active Substance: AZITHROMYCIN ANHYDROUS
  7. FUROSEMIDE. [Concomitant]
     Active Substance: FUROSEMIDE
  8. COLACE [Concomitant]
     Active Substance: DOCUSATE SODIUM
  9. CARVEDILOL. [Concomitant]
     Active Substance: CARVEDILOL
  10. AMIKACIN [Suspect]
     Active Substance: AMIKACIN
     Indication: ACTINOMYCOTIC PULMONARY INFECTION
     Dosage: STRENGTH: 500 MG PER 2 ML MG MILLIGRAM(S)
     Route: 055
     Dates: start: 20160730
  11. MULTIVITE [Concomitant]
     Active Substance: VITAMINS
  12. DULOCLAX [Concomitant]
  13. ZETIA [Concomitant]
     Active Substance: EZETIMIBE
  14. VITAMIN D3 [Concomitant]
     Active Substance: CHOLECALCIFEROL
  15. CLOPIDOGREL [Concomitant]
     Active Substance: CLOPIDOGREL BISULFATE
  16. AMIODARONE [Concomitant]
     Active Substance: AMIODARONE
  17. THIOTHIXENE. [Concomitant]
     Active Substance: THIOTHIXENE
  18. ADVAIR HFA [Concomitant]
     Active Substance: FLUTICASONE PROPIONATE\SALMETEROL XINAFOATE
  19. PEPCID [Concomitant]
     Active Substance: FAMOTIDINE
  20. DIGOXIN. [Concomitant]
     Active Substance: DIGOXIN
  21. ZYVOX [Concomitant]
     Active Substance: LINEZOLID
  22. PRAVASTATIN. [Concomitant]
     Active Substance: PRAVASTATIN
  23. ALBUTEROL. [Concomitant]
     Active Substance: ALBUTEROL
  24. ACIDOPHILUS [Concomitant]
     Active Substance: LACTOBACILLUS ACIDOPHILUS
  25. ETHAMBUTOL [Concomitant]
     Active Substance: ETHAMBUTOL HYDROCHLORIDE
  26. POLYETH GLYC [Concomitant]
     Active Substance: POLYETHYLENE GLYCOLS
  27. BENZTROPINE [Concomitant]
     Active Substance: BENZTROPINE

REACTIONS (1)
  - Dyspnoea [None]
